FAERS Safety Report 8152609-X (Version None)
Quarter: 2012Q1

REPORT INFORMATION
  Report Type: 
  Country: None (occurrence: None)
  Receive Date: 20120221
  Receipt Date: 20120215
  Transmission Date: 20120608
  Serious: Yes (Hospitalization)
  Sender: FDA-Public Use
  Company Number: US-AMGEN-USASP2012007763

PATIENT
  Age: 80 Year
  Sex: Male
  Weight: 89.796 kg

DRUGS (17)
  1. COREG [Concomitant]
     Dosage: 6.25 UNK, UNK
  2. BENAZEPRIL HYDROCHLORIDE [Concomitant]
     Dosage: 20 ABSENT, QD
  3. AMBIEN [Concomitant]
     Dosage: 5 MG, QD
  4. TUMS                               /00193601/ [Concomitant]
     Dosage: 1000 MG, Q8H
  5. PROTONIX [Concomitant]
     Dosage: 40 MG, QD
  6. SECTRAL [Concomitant]
     Dosage: 200 ABSENT, QD
  7. IMDUR [Concomitant]
     Dosage: 120 ABSENT, QD
  8. LASIX [Concomitant]
     Dosage: 40 MG, UNK
  9. MAXZIDE [Concomitant]
     Dosage: UNK UNK, QD
  10. GLIPIZIDE [Concomitant]
     Dosage: 5 MG, QD
  11. ASPIRIN [Concomitant]
     Dosage: 81 ABSENT, QD
  12. SINEMET [Concomitant]
     Dosage: UNK UNK, QD
  13. COUMADIN [Concomitant]
     Dosage: 2.5 MG, UNK
  14. REMERON [Concomitant]
     Dosage: 30 MG, QD
  15. LIVALO [Concomitant]
     Dosage: 0.5 DF, QD
  16. PROLIA [Suspect]
     Indication: OSTEOPOROSIS
     Dosage: 60 MG, Q6MO
     Route: 058
     Dates: start: 20111201, end: 20111201
  17. KLONOPIN [Concomitant]
     Dosage: 0.5 ABSENT, QD

REACTIONS (8)
  - HYPOCALCAEMIA [None]
  - RENAL FAILURE CHRONIC [None]
  - OEDEMA PERIPHERAL [None]
  - BENIGN PROSTATIC HYPERPLASIA [None]
  - PAIN [None]
  - ABASIA [None]
  - HYPOMAGNESAEMIA [None]
  - ELECTROLYTE IMBALANCE [None]
